FAERS Safety Report 7817266-8 (Version None)
Quarter: 2011Q4

REPORT INFORMATION
  Report Type: 
  Country: None (occurrence: None)
  Receive Date: 20111017
  Receipt Date: 20111005
  Transmission Date: 20120403
  Serious: Yes (Hospitalization)
  Sender: FDA-Public Use
  Company Number: FR-SANOFI-AVENTIS-2011SA018280

PATIENT
  Age: 64 Year
  Sex: Female

DRUGS (7)
  1. CEFTRIAXONE [Suspect]
     Dates: start: 20101217, end: 20101217
  2. LASIX [Suspect]
     Dates: start: 20101218, end: 20101221
  3. AMOXICILLIN [Suspect]
     Dates: start: 20101216, end: 20101216
  4. CIPROFLOXACIN [Suspect]
     Dates: start: 20101217, end: 20101226
  5. LASIX [Suspect]
     Dates: start: 20110101, end: 20110101
  6. LASIX [Suspect]
     Dates: start: 20101228, end: 20101228
  7. ESOMEPRAZOLE SODIUM [Suspect]
     Dates: start: 20101217, end: 20110126

REACTIONS (1)
  - DRUG RASH WITH EOSINOPHILIA AND SYSTEMIC SYMPTOMS [None]
